FAERS Safety Report 24936461 (Version 1)
Quarter: 2025Q1

REPORT INFORMATION
  Report Type: Report from Study
  Country: US (occurrence: US)
  Receive Date: 20250206
  Receipt Date: 20250206
  Transmission Date: 20250409
  Serious: Yes (Hospitalization, Other)
  Sender: GILEAD
  Company Number: US-GILEAD-2025-0702847

PATIENT
  Sex: Male

DRUGS (1)
  1. AZTREONAM LYSINE [Suspect]
     Active Substance: AZTREONAM LYSINE
     Indication: Cystic fibrosis
     Dosage: CAYSTON 75 MG/ML INH SOLN 84^S INHALE 1 VIAL VIA ALTERA NEBULIZER THREE TIMES A DAY FOR 28 DAYS ON,
     Route: 055
     Dates: start: 20221101

REACTIONS (2)
  - Pneumonia [Unknown]
  - Product use issue [Unknown]
